FAERS Safety Report 5367484-6 (Version None)
Quarter: 2007Q2

REPORT INFORMATION
  Report Type: 
  Country: None (occurrence: None)
  Receive Date: 20070622
  Receipt Date: 20060620
  Transmission Date: 20071010
  Serious: No
  Sender: FDA-Public Use
  Company Number: US-ASTRAZENECA-2006UW13147

PATIENT
  Sex: Male

DRUGS (2)
  1. PULMICORT [Suspect]
     Indication: ASTHMA
     Route: 055
     Dates: start: 20060601
  2. ADVAIR DISKUS 100/50 [Concomitant]

REACTIONS (5)
  - CHEST PAIN [None]
  - FATIGUE [None]
  - HEADACHE [None]
  - NECK PAIN [None]
  - PALPITATIONS [None]
